FAERS Safety Report 16658358 (Version 1)
Quarter: 2019Q3

REPORT INFORMATION
  Report Type: Spontaneous
  Country: FR (occurrence: FR)
  Receive Date: 20190801
  Receipt Date: 20190801
  Transmission Date: 20191004
  Serious: Yes (Disabling)
  Sender: FDA-Public Use
  Company Number: FR-MYLANLABS-2019M1072017

PATIENT
  Age: 44 Year
  Sex: Male
  Weight: 91 kg

DRUGS (4)
  1. LAMISIL [Concomitant]
     Active Substance: TERBINAFINE HYDROCHLORIDE
     Dosage: UNK
     Dates: start: 200611
  2. FLUDEX                             /00340101/ [Concomitant]
     Active Substance: INDAPAMIDE
     Dosage: UNK
  3. ATENOLOL. [Suspect]
     Active Substance: ATENOLOL
     Indication: HYPERTENSION
     Dosage: 100 MILLIGRAM, QD
     Route: 048
  4. VFEND [Suspect]
     Active Substance: VORICONAZOLE
     Indication: MYCETOMA MYCOTIC
     Dosage: 400 MILLIGRAM, QD
     Route: 048
     Dates: start: 200707

REACTIONS (2)
  - Erectile dysfunction [Not Recovered/Not Resolved]
  - Libido decreased [Not Recovered/Not Resolved]

NARRATIVE: CASE EVENT DATE: 200804
